FAERS Safety Report 13422861 (Version 1)
Quarter: 2017Q2

REPORT INFORMATION
  Report Type: Spontaneous
  Country: US (occurrence: US)
  Receive Date: 20170410
  Receipt Date: 20170410
  Transmission Date: 20170830
  Serious: Yes (Other)
  Sender: FDA-Public Use
  Company Number: None

PATIENT
  Sex: Female
  Weight: 50 kg

DRUGS (4)
  1. MULTI VITAMIN [Concomitant]
     Active Substance: VITAMINS
  2. ALFALFA [Concomitant]
     Active Substance: ALFALFA
  3. NEUTROGENA TRIPLE AGE REPAIR MOISTURIZER BROAD SPECTRUM SPF25 [Suspect]
     Active Substance: AVOBENZONE\HOMOSALATE\OCTISALATE\OCTOCRYLENE
     Indication: SKIN WRINKLING
     Dosage: DOSE AMOUNT - 1/2 TSP, 3X A DAY, TOPICAL
     Route: 061
     Dates: start: 20161225, end: 20170210
  4. NTG TRIPLE AGE REPAIR MOISTURIZER NIGHT [Suspect]
     Active Substance: COSMETICS
     Indication: SKIN WRINKLING
     Dosage: DOSE AMOUNT - 1/2 TSP, 2X A DAY, TOPICAL
     Route: 061
     Dates: start: 20161225, end: 20170210

REACTIONS (2)
  - Skin disorder [None]
  - Suicidal ideation [None]

NARRATIVE: CASE EVENT DATE: 20161225
